FAERS Safety Report 12983781 (Version 2)
Quarter: 2017Q1

REPORT INFORMATION
  Report Type: Report from Study
  Country: GB (occurrence: GB)
  Receive Date: 20161129
  Receipt Date: 20170330
  Transmission Date: 20170428
  Serious: Yes (Life-Threatening, Hospitalization)
  Sender: FDA-Public Use
  Company Number: GB-SA-2016SA213435

PATIENT
  Age: 28 Year
  Sex: Male
  Weight: 118 kg

DRUGS (18)
  1. PALIFERMIN [Suspect]
     Active Substance: PALIFERMIN
     Indication: MULTIPLE SCLEROSIS
     Dosage: FREQUENCY: 12 DOSES OVER 3 M
     Route: 041
     Dates: start: 20131113, end: 20140220
  2. PREDNISOLONE. [Concomitant]
     Active Substance: PREDNISOLONE
     Route: 048
     Dates: start: 2016
  3. ALEMTUZUMAB [Suspect]
     Active Substance: ALEMTUZUMAB
     Indication: RELAPSING-REMITTING MULTIPLE SCLEROSIS
     Route: 041
     Dates: start: 20131118, end: 20131122
  4. PALIFERMIN [Suspect]
     Active Substance: PALIFERMIN
     Indication: MULTIPLE SCLEROSIS
     Dosage: FREQUENCY: 12 DOSES OVER 3 M
     Route: 041
     Dates: start: 20141126, end: 20141210
  5. DEXAMETHASONE. [Concomitant]
     Active Substance: DEXAMETHASONE
     Route: 041
     Dates: start: 2016
  6. DOXYCYCLINE. [Concomitant]
     Active Substance: DOXYCYCLINE
     Route: 041
     Dates: start: 2016, end: 2016
  7. COTRIMOXAZOLE [Concomitant]
     Active Substance: SULFAMETHOXAZOLE\TRIMETHOPRIM
     Dates: start: 20161014
  8. OMEPRAZOLE. [Concomitant]
     Active Substance: OMEPRAZOLE
     Route: 048
     Dates: start: 2016
  9. AZITHROMYCIN ANHYDROUS. [Concomitant]
     Active Substance: AZITHROMYCIN ANHYDROUS
     Route: 041
     Dates: start: 2016, end: 2016
  10. ALEMTUZUMAB [Suspect]
     Active Substance: ALEMTUZUMAB
     Indication: RELAPSING-REMITTING MULTIPLE SCLEROSIS
     Route: 041
     Dates: start: 20141201, end: 20141210
  11. BUMETANIDE. [Concomitant]
     Active Substance: BUMETANIDE
     Indication: OEDEMA PERIPHERAL
     Route: 048
     Dates: start: 2016
  12. ACICLOVIR [Concomitant]
     Active Substance: ACYCLOVIR
     Indication: PROPHYLAXIS
     Route: 048
     Dates: start: 20160911
  13. HYDROCODONE [Concomitant]
     Active Substance: HYDROCODONE
     Route: 048
     Dates: start: 2016
  14. FOLIC ACID. [Concomitant]
     Active Substance: FOLIC ACID
     Route: 048
     Dates: start: 2016
  15. THYROXIN [Concomitant]
     Active Substance: LEVOTHYROXINE
     Route: 048
     Dates: start: 2016
  16. SALBUTAMOL [Concomitant]
     Active Substance: ALBUTEROL
     Route: 055
  17. CALCIUM CARBONATE. [Concomitant]
     Active Substance: CALCIUM CARBONATE
     Indication: PROPHYLAXIS
     Route: 048
     Dates: start: 20161025
  18. FLUDROCORTISONE [Concomitant]
     Active Substance: FLUDROCORTISONE
     Route: 048
     Dates: start: 2016

REACTIONS (6)
  - Acquired haemophilia [Not Recovered/Not Resolved]
  - Haemorrhage [Not Recovered/Not Resolved]
  - Histiocytosis haematophagic [Recovering/Resolving]
  - Blood albumin decreased [Unknown]
  - Renal failure [Not Recovered/Not Resolved]
  - Dehydration [Not Recovered/Not Resolved]

NARRATIVE: CASE EVENT DATE: 20160521
